FAERS Safety Report 5745001-6 (Version None)
Quarter: 2008Q2

REPORT INFORMATION
  Report Type: 
  Country: None (occurrence: None)
  Receive Date: 20080521
  Receipt Date: 20080513
  Transmission Date: 20081010
  Serious: Yes (Death, Congenital Anomaly)
  Sender: FDA-Public Use
  Company Number: GB-ELI_LILLY_AND_COMPANY-GB200805000397

PATIENT

DRUGS (2)
  1. ZYPREXA [Suspect]
     Indication: MENTAL DISORDER
     Dosage: 15 MG, UNK
     Route: 064
     Dates: start: 20030101
  2. VENLAFAXINE HCL [Concomitant]
     Indication: MENTAL DISORDER
     Dosage: 150 MG, UNK
     Route: 064
     Dates: start: 20030101

REACTIONS (2)
  - DIAPHRAGMATIC HERNIA [None]
  - DRUG EXPOSURE DURING PREGNANCY [None]
